FAERS Safety Report 15965845 (Version 4)
Quarter: 2019Q2

REPORT INFORMATION
  Report Type: Spontaneous
  Country: US (occurrence: US)
  Receive Date: 20190215
  Receipt Date: 20190627
  Transmission Date: 20190711
  Serious: Yes (Hospitalization)
  Sender: FDA-Public Use
  Company Number: US-PFIZER INC-2019070027

PATIENT
  Age: 72 Year
  Sex: Female
  Weight: 68 kg

DRUGS (2)
  1. GABAPENTIN. [Concomitant]
     Active Substance: GABAPENTIN
     Indication: NEUROPATHY PERIPHERAL
     Dosage: UNK
     Dates: start: 20181212
  2. IBRANCE [Suspect]
     Active Substance: PALBOCICLIB
     Indication: BREAST CANCER METASTATIC
     Dosage: 75 MG, CYCLIC(ONCE A DAY FOR 3 WEEKS OFF A WEEK THEN 3 MORE WEEK ON)
     Dates: start: 20180813

REACTIONS (5)
  - Full blood count decreased [Not Recovered/Not Resolved]
  - Nausea [Recovering/Resolving]
  - Anaemia [Not Recovered/Not Resolved]
  - Hypoacusis [Unknown]
  - Fatigue [Not Recovered/Not Resolved]
